FAERS Safety Report 6938987-5 (Version None)
Quarter: 2010Q3

REPORT INFORMATION
  Report Type: 
  Country: None (occurrence: None)
  Receive Date: 20100824
  Receipt Date: 20100812
  Transmission Date: 20110219
  Serious: Yes (Other)
  Sender: FDA-Public Use
  Company Number: BR-PFIZER INC-2010097336

PATIENT
  Age: 19 Year
  Sex: Male
  Weight: 67 kg

DRUGS (16)
  1. GEODON [Suspect]
     Indication: OBSESSIVE-COMPULSIVE DISORDER
     Dosage: 40 MG, 1X/DAY
     Route: 048
     Dates: start: 20080101
  2. GEODON [Suspect]
     Indication: ANXIETY
     Dosage: 80 MG, DAILY
     Route: 048
  3. GEODON [Suspect]
     Indication: PHOBIA
  4. GEODON [Suspect]
     Indication: DEPRESSION
  5. ALPRAZOLAM [Suspect]
     Dosage: 1 MG, 2X/DAY
  6. ALPRAZOLAM XR [Suspect]
     Dosage: 2 MG
  7. CITALOPRAM [Suspect]
     Dosage: 60 MG, UNK
  8. CITALOPRAM [Suspect]
     Dosage: 40 MG, UNK
  9. PAROXETINE [Suspect]
     Dosage: 60 MG, UNK
     Route: 048
  10. VALPROATE SEMISODIUM [Suspect]
     Dosage: 1000 MG, UNK
     Route: 048
  11. CARBAMAZEPINE [Suspect]
     Dosage: 100 MG, UNK
     Route: 048
  12. RISPERIDONE [Suspect]
     Dosage: 3 MG, UNK
  13. QUETIAPINE [Suspect]
     Dosage: 200 MG, UNK
  14. OLANZAPINE [Suspect]
     Dosage: 15 MG, UNK
  15. ARIPIPRAZOLE [Suspect]
     Dosage: 10 MG, UNK
  16. LEVOTHYROXINE SODIUM [Concomitant]
     Indication: HYPOTHYROIDISM
     Dosage: UNK

REACTIONS (11)
  - ANXIETY [None]
  - BIPOLAR I DISORDER [None]
  - BODY TEMPERATURE DECREASED [None]
  - COGNITIVE DISORDER [None]
  - DEREALISATION [None]
  - DRUG INEFFECTIVE [None]
  - EXTRAPYRAMIDAL DISORDER [None]
  - PANIC ATTACK [None]
  - PHOBIA [None]
  - SOMNOLENCE [None]
  - TEMPERATURE INTOLERANCE [None]
